FAERS Safety Report 23771878 (Version 2)
Quarter: 2024Q2

REPORT INFORMATION
  Report Type: Report from Study
  Country: US (occurrence: None)
  Receive Date: 20240423
  Receipt Date: 20240503
  Transmission Date: 20240716
  Serious: Yes (Life-Threatening, Hospitalization, Disabling)
  Sender: FDA-Public Use
  Company Number: 2024A094068

PATIENT
  Age: 64 Year
  Sex: Female

DRUGS (2)
  1. CALQUENCE [Suspect]
     Active Substance: ACALABRUTINIB
     Indication: Chronic lymphocytic leukaemia
     Route: 048
     Dates: start: 202201, end: 2022
  2. CALQUENCE [Suspect]
     Active Substance: ACALABRUTINIB
     Route: 048
     Dates: start: 2022, end: 202401

REACTIONS (12)
  - Coma [Unknown]
  - Paralysis [Unknown]
  - COVID-19 pneumonia [Unknown]
  - Cough [Unknown]
  - Sleep disorder [Recovered/Resolved]
  - Groin pain [Recovered/Resolved]
  - Contusion [Unknown]
  - Splenomegaly [Unknown]
  - White blood cell count [Unknown]
  - Crying [Recovered/Resolved]
  - Headache [Recovered/Resolved]
  - White blood cell count decreased [Unknown]

NARRATIVE: CASE EVENT DATE: 20220101
